FAERS Safety Report 4676475-X (Version None)
Quarter: 2005Q2

REPORT INFORMATION
  Report Type: 
  Country: None (occurrence: None)
  Receive Date: 20050527
  Receipt Date: 20050523
  Transmission Date: 20051028
  Serious: Yes (Other)
  Sender: FDA-Public Use
  Company Number: US-JNJFOC-20050304505

PATIENT
  Sex: Male
  Weight: 51.26 kg

DRUGS (4)
  1. CONCERTA [Suspect]
     Route: 049
  2. ZYRTEC [Concomitant]
     Indication: ASTHMA
  3. ALBUTEROL [Concomitant]
     Indication: ASTHMA
  4. FLOVENT [Concomitant]
     Indication: ASTHMA

REACTIONS (1)
  - DEPRESSION [None]
